FAERS Safety Report 25552472 (Version 1)
Quarter: 2025Q3

REPORT INFORMATION
  Report Type: Spontaneous
  Country: US (occurrence: US)
  Receive Date: 20250715
  Receipt Date: 20250715
  Transmission Date: 20251021
  Serious: Yes (Other)
  Sender: BRISTOL-MYERS SQUIBB COMPANY
  Company Number: US-BRISTOL-MYERS SQUIBB COMPANY-2025-093531

PATIENT
  Age: 76 Year
  Sex: Male
  Weight: 71.9 kg

DRUGS (2)
  1. REVLIMID [Suspect]
     Active Substance: LENALIDOMIDE
     Indication: Plasma cell myeloma
     Route: 048
     Dates: start: 20250604
  2. REVLIMID [Suspect]
     Active Substance: LENALIDOMIDE
     Indication: Immune thrombocytopenia
     Route: 048
     Dates: start: 20220330

REACTIONS (2)
  - Treatment noncompliance [Unknown]
  - Adverse event [Unknown]
